FAERS Safety Report 9959425 (Version 1)
Quarter: 2014Q1

REPORT INFORMATION
  Report Type: Report from Study
  Country: US (occurrence: US)
  Receive Date: 20140305
  Receipt Date: 20140305
  Transmission Date: 20141002
  Serious: No
  Sender: FDA-Public Use
  Company Number: US-ABBVIE-13P-163-1106853-00

PATIENT
  Age: 58 Year
  Sex: Female

DRUGS (26)
  1. HUMIRA [Suspect]
     Indication: CROHN^S DISEASE
     Dates: start: 20130209
  2. ADDERALL [Concomitant]
     Indication: ATTENTION DEFICIT/HYPERACTIVITY DISORDER
     Dosage: 30 MG DAILY
  3. AMBIEN [Concomitant]
     Indication: INSOMNIA
     Dosage: AT BEDTIME
  4. TEMAZEPAM [Concomitant]
     Indication: INSOMNIA
     Dosage: AT BEDTIME
  5. ASA [Concomitant]
     Indication: CORONARY ARTERIAL STENT INSERTION
     Dosage: 81 MG DAILY
  6. B12 [Concomitant]
     Indication: VITAMIN SUPPLEMENTATION
     Dosage: 1000 MG DAILY
  7. COUMADIN [Concomitant]
     Indication: THROMBOSIS
     Dosage: 5 MG/ 2.5 MG/ 1.25 DAILY-DEPENDENT ON LAB WORK EVERY OTHER WEEK
  8. DEXILANT [Concomitant]
     Indication: GASTROOESOPHAGEAL REFLUX DISEASE
     Dosage: 60 MG DAILY
  9. EVISTA [Concomitant]
     Indication: OSTEOPOROSIS
     Dosage: 60 MG DAILY
  10. FENOFIBRATE [Concomitant]
     Indication: PRODUCT USED FOR UNKNOWN INDICATION
     Dosage: 160 MG DAILY
  11. FERROUS SULFATE [Concomitant]
     Indication: IRON DEFICIENCY
     Dosage: 325 MG DAILY
  12. FIORICET [Concomitant]
     Indication: MIGRAINE
  13. IMITREX [Concomitant]
     Indication: MIGRAINE
  14. FOLIC ACID [Concomitant]
     Indication: VITAMIN SUPPLEMENTATION
     Dosage: 1 MG DAILY
  15. FUROSEMIDE [Concomitant]
     Indication: FLUID RETENTION
     Dosage: 20 MG DAILY
  16. LISINOPRIL [Concomitant]
     Indication: PRODUCT USED FOR UNKNOWN INDICATION
     Dosage: 10 MG DAILY
  17. ONDANSETRON ODT [Concomitant]
     Indication: NAUSEA
  18. MAGNESIUM OX [Concomitant]
     Indication: MINERAL SUPPLEMENTATION
  19. PROMETHAZINE [Concomitant]
     Indication: NAUSEA
     Dosage: 25 MG DAILY
  20. SEROQUEL XR [Concomitant]
     Indication: STRESS
     Dosage: 50 MG DAILY
  21. SEROQUEL XR [Concomitant]
     Indication: DEPRESSION
  22. SYNTHROID [Concomitant]
     Indication: HYPOTHYROIDISM
     Dosage: 150 MG DAILY
  23. VYTORIN [Concomitant]
     Indication: BLOOD PRESSURE
     Dosage: 50 MG DAILY
  24. WELLBUTRIN [Concomitant]
     Indication: DEPRESSION
  25. WELLBUTRIN [Concomitant]
     Indication: ANXIETY
  26. XANAX [Concomitant]
     Indication: ANXIETY

REACTIONS (2)
  - Gout [Not Recovered/Not Resolved]
  - Injection site pain [Not Recovered/Not Resolved]
